FAERS Safety Report 5903340-X (Version None)
Quarter: 2008Q3

REPORT INFORMATION
  Report Type: 
  Country: None (occurrence: None)
  Receive Date: 20080930
  Receipt Date: 20080919
  Transmission Date: 20090109
  Serious: Yes (Death, Hospitalization)
  Sender: FDA-Public Use
  Company Number: TR-JNJFOC-20080902821

PATIENT
  Age: 53 Year
  Sex: Male

DRUGS (9)
  1. REMICADE [Suspect]
     Indication: PSORIASIS
     Route: 042
  2. REMICADE [Suspect]
     Indication: PSORIATIC ARTHROPATHY
     Route: 042
  3. ETANERCEPT [Suspect]
     Indication: PSORIASIS
     Route: 058
  4. ETANERCEPT [Suspect]
     Indication: PSORIATIC ARTHROPATHY
     Route: 058
  5. CYCLOSPORINE [Concomitant]
     Indication: PSORIASIS
  6. METHOTREXATE [Concomitant]
     Indication: PSORIASIS
  7. ATARAX [Concomitant]
  8. BEPANTHENE [Concomitant]
  9. COUMADIN [Concomitant]

REACTIONS (2)
  - CARDIAC ARREST [None]
  - TUBERCULOSIS [None]
